FAERS Safety Report 4527184-9 (Version None)
Quarter: 2004Q4

REPORT INFORMATION
  Report Type: 
  Country: None (occurrence: None)
  Receive Date: 20041214
  Receipt Date: 20041214
  Transmission Date: 20050328
  Serious: No
  Sender: FDA-Public Use
  Company Number: None

PATIENT
  Age: 81 Year
  Sex: Male
  Weight: 78.0187 kg

DRUGS (1)
  1. NAFCILLIN [Suspect]

REACTIONS (2)
  - MARKEDLY REDUCED DIETARY INTAKE [None]
  - RENAL FAILURE ACUTE [None]
